FAERS Safety Report 17631930 (Version 1)
Quarter: 2020Q2

REPORT INFORMATION
  Report Type: Spontaneous
  Country: US (occurrence: US)
  Receive Date: 20200406
  Receipt Date: 20200406
  Transmission Date: 20200713
  Serious: No
  Sender: FDA-Public Use
  Company Number: US-THERATECHNOLOGIES INC.-2020-THE-TES-000077

PATIENT
  Sex: Female

DRUGS (14)
  1. LANSOPRAZOLE. [Concomitant]
     Active Substance: LANSOPRAZOLE
  2. TRIUMEQ [Concomitant]
     Active Substance: ABACAVIR SULFATE\DOLUTEGRAVIR SODIUM\LAMIVUDINE
  3. VITAMIN B-1 [Concomitant]
     Active Substance: THIAMINE HYDROCHLORIDE
  4. ASPIRIN 81 [Concomitant]
     Active Substance: ASPIRIN
  5. MULTIVITAMINS                      /07504101/ [Concomitant]
     Active Substance: VITAMINS
  6. AMITRIPTYLINE HYDROCHLORIDE. [Concomitant]
     Active Substance: AMITRIPTYLINE HYDROCHLORIDE
  7. VITAMIN D                          /00107901/ [Concomitant]
     Active Substance: ERGOCALCIFEROL
  8. EGRIFTA [Suspect]
     Active Substance: TESAMORELIN ACETATE
     Indication: EXCESSIVE SKIN
     Dosage: 2 MG, QD
     Route: 058
  9. MELOXICAM. [Concomitant]
     Active Substance: MELOXICAM
  10. DILTIAZEM HYDROCHLORIDE. [Concomitant]
     Active Substance: DILTIAZEM HYDROCHLORIDE
  11. SPIRONOLACTONE. [Concomitant]
     Active Substance: SPIRONOLACTONE
  12. FENOFIBRATE. [Concomitant]
     Active Substance: FENOFIBRATE
  13. GABAPENTIN. [Concomitant]
     Active Substance: GABAPENTIN
  14. MEDROXYPROGESTERONE ACETATE. [Concomitant]
     Active Substance: MEDROXYPROGESTERONE ACETATE

REACTIONS (3)
  - Off label use [Unknown]
  - Body fat disorder [Not Recovered/Not Resolved]
  - Product dose omission [Unknown]
